FAERS Safety Report 23272784 (Version 1)
Quarter: 2023Q4

REPORT INFORMATION
  Report Type: Spontaneous
  Country: ES (occurrence: ES)
  Receive Date: 20231207
  Receipt Date: 20231207
  Transmission Date: 20240110
  Serious: Yes (Other)
  Sender: FDA-Public Use
  Company Number: ES-FERRINGPH-2023FE05804

PATIENT

DRUGS (4)
  1. DINOPROSTONE [Suspect]
     Active Substance: DINOPROSTONE
     Indication: Labour induction
     Dosage: 10 MG
     Route: 067
     Dates: start: 20231115, end: 20231115
  2. FOSFOMICINA KERN PHARMA [Concomitant]
     Dosage: 1 G, MONTHLY
     Route: 048
     Dates: start: 20210325
  3. TROMALYT [Concomitant]
     Active Substance: ASPIRIN
     Dosage: 150 MG, DAILY
     Route: 048
     Dates: start: 20231030
  4. RILAST [BUDESONIDE;FORMOTEROL FUMARATE] [Concomitant]
     Dosage: 1 DOSAGE FORM
     Dates: start: 20200622

REACTIONS (4)
  - Uterine tachysystole [Recovered/Resolved]
  - Vomiting [Recovered/Resolved]
  - Malaise [Recovered/Resolved]
  - Drug hypersensitivity [Unknown]

NARRATIVE: CASE EVENT DATE: 20231115
